FAERS Safety Report 11667503 (Version 1)
Quarter: 2015Q4

REPORT INFORMATION
  Report Type: Spontaneous
  Country: US (occurrence: US)
  Receive Date: 20151027
  Receipt Date: 20151027
  Transmission Date: 20160304
  Serious: No
  Sender: FDA-Public Use
  Company Number: US-ELI_LILLY_AND_COMPANY-US201002007410

PATIENT
  Age: 71 Year
  Sex: Female

DRUGS (3)
  1. FORTEO [Suspect]
     Active Substance: TERIPARATIDE
     Indication: OSTEOPOROSIS
     Dosage: 20 UG, DAILY (1/D)
     Route: 065
     Dates: start: 200904
  2. GLIPIZIDE. [Concomitant]
     Active Substance: GLIPIZIDE
     Indication: BLOOD GLUCOSE ABNORMAL
     Dosage: 5 MG, UNKNOWN
     Route: 065
  3. ACTOS [Concomitant]
     Active Substance: PIOGLITAZONE HYDROCHLORIDE
     Indication: BLOOD GLUCOSE ABNORMAL
     Dosage: 30 MG, UNKNOWN
     Route: 065

REACTIONS (5)
  - Hypoaesthesia [Unknown]
  - Gait disturbance [Unknown]
  - Nervous system disorder [Unknown]
  - Herpes zoster [Unknown]
  - Back pain [Unknown]
